FAERS Safety Report 5259986-8 (Version None)
Quarter: 2007Q1

REPORT INFORMATION
  Report Type: 
  Country: None (occurrence: None)
  Receive Date: 20070309
  Receipt Date: 20060119
  Transmission Date: 20070707
  Serious: Yes (Other)
  Sender: FDA-Public Use
  Company Number: US-GLAXOSMITHKLINE-A0589850A

PATIENT
  Age: 69 Year
  Sex: Male

DRUGS (2)
  1. NICORETTE [Suspect]
     Dosage: 2MG UNKNOWN
  2. NICORETTE (MINT) [Suspect]
     Dosage: 2MG UNKNOWN

REACTIONS (1)
  - DRUG ABUSER [None]
